FAERS Safety Report 5532750-8 (Version None)
Quarter: 2007Q4

REPORT INFORMATION
  Report Type: 
  Country: None (occurrence: None)
  Receive Date: 20071204
  Receipt Date: 20071123
  Transmission Date: 20080405
  Serious: Yes (Other)
  Sender: FDA-Public Use
  Company Number: PHHY2007BE00576

PATIENT
  Age: 54 Year
  Sex: Female

DRUGS (7)
  1. IRBESARTAN [Concomitant]
  2. DAFLON [Concomitant]
  3. BIOFENAC [Concomitant]
  4. ALDACTAZIDE [Concomitant]
  5. ASAFLOW [Concomitant]
  6. EMCONCOR [Concomitant]
  7. CYCLOSPORINE [Suspect]
     Indication: PSORIASIS
     Dates: start: 20070521, end: 20070629

REACTIONS (3)
  - BLOOD CREATINE PHOSPHOKINASE INCREASED [None]
  - DYSPEPSIA [None]
  - MUSCLE SPASMS [None]
